FAERS Safety Report 6256290-6 (Version None)
Quarter: 2009Q3

REPORT INFORMATION
  Report Type: 
  Country: None (occurrence: None)
  Receive Date: 20090706
  Receipt Date: 20090625
  Transmission Date: 20100115
  Serious: Yes (Other)
  Sender: FDA-Public Use
  Company Number: DE-BAYER-200924252GPV

PATIENT
  Sex: Female

DRUGS (1)
  1. MIRENA [Suspect]
     Indication: DRUG USE FOR UNKNOWN INDICATION
     Route: 015
     Dates: start: 20040501, end: 20080401

REACTIONS (13)
  - ALCOHOL INTOLERANCE [None]
  - BACK PAIN [None]
  - CARDIAC FLUTTER [None]
  - CHILLS [None]
  - DEPRESSION [None]
  - DIZZINESS [None]
  - EXERCISE TOLERANCE DECREASED [None]
  - FATIGUE [None]
  - LISTLESS [None]
  - PAIN IN EXTREMITY [None]
  - PANIC ATTACK [None]
  - RESTLESSNESS [None]
  - SENSATION OF FOREIGN BODY [None]
